FAERS Safety Report 8904059 (Version 1)
Quarter: 2012Q4

REPORT INFORMATION
  Report Type: 
  Country: IE (occurrence: IE)
  Receive Date: 20121112
  Receipt Date: 20121112
  Transmission Date: 20130627
  Serious: Yes (Hospitalization)
  Sender: FDA-Public Use
  Company Number: IE-ELI_LILLY_AND_COMPANY-IE201211000981

PATIENT
  Sex: Male

DRUGS (4)
  1. FORSTEO [Suspect]
     Indication: OSTEOPOROSIS
     Dosage: 20 ug, qd
     Route: 058
     Dates: start: 20121005
  2. SOLPADOL [Concomitant]
     Dosage: UNK
  3. EMCOR [Concomitant]
     Dosage: UNK
  4. CALCICHEW [Concomitant]
     Dosage: UNK

REACTIONS (1)
  - Lower respiratory tract infection [Not Recovered/Not Resolved]
